FAERS Safety Report 14285753 (Version 9)
Quarter: 2019Q1

REPORT INFORMATION
  Report Type: Spontaneous
  Country: US (occurrence: US)
  Receive Date: 20171214
  Receipt Date: 20190320
  Transmission Date: 20190417
  Serious: Yes (Other)
  Sender: FDA-Public Use
  Company Number: US-PFIZER INC-2017533097

PATIENT
  Age: 77 Year
  Sex: Female
  Weight: 59 kg

DRUGS (4)
  1. IBRANCE [Suspect]
     Active Substance: PALBOCICLIB
     Dosage: 100 MG, CYCLIC (1 CAPSULE DAILY DAYS 1-21 EVERY 28 DAYS)
     Route: 048
     Dates: start: 20171129
  2. IBRANCE [Suspect]
     Active Substance: PALBOCICLIB
     Dosage: 100 MG, CYCLIC (1 CAPSULE DAILY FOR 21 DAYS THEN 7 DAYS OFF)
     Route: 048
  3. IBRANCE [Suspect]
     Active Substance: PALBOCICLIB
     Indication: BREAST CANCER METASTATIC
     Dosage: 125 MG, CYCLIC (1 CAPSULE DAILY 1-21 DAYS)
     Route: 048
     Dates: start: 20171128, end: 201711
  4. LETROZOLE. [Concomitant]
     Active Substance: LETROZOLE
     Indication: BREAST CANCER
     Dosage: 2.5 MG, 1X/DAY

REACTIONS (12)
  - Asthenia [Unknown]
  - Muscular weakness [Unknown]
  - Pain [Unknown]
  - Insomnia [Unknown]
  - Cancer pain [Unknown]
  - Fatigue [Unknown]
  - Micturition urgency [Unknown]
  - Decreased appetite [Unknown]
  - Anxiety [Not Recovered/Not Resolved]
  - Oral pain [Unknown]
  - Nausea [Unknown]
  - Bone pain [Unknown]
